FAERS Safety Report 7644038-X (Version None)
Quarter: 2011Q3

REPORT INFORMATION
  Report Type: 
  Country: None (occurrence: None)
  Receive Date: 20110729
  Receipt Date: 20110721
  Transmission Date: 20111222
  Serious: Yes (Other)
  Sender: FDA-Public Use
  Company Number: FR-BRISTOL-MYERS SQUIBB COMPANY-15925159

PATIENT
  Age: 6 Year
  Sex: Female

DRUGS (3)
  1. METOPIMAZINE [Suspect]
  2. CHLORPROMAZINE [Suspect]
  3. ETOPOSIDE [Suspect]

REACTIONS (3)
  - HYPONATRAEMIA [None]
  - URINARY RETENTION [None]
  - RENAL FAILURE ACUTE [None]
